FAERS Safety Report 8423933 (Version 3)
Quarter: 2013Q4

REPORT INFORMATION
  Report Type: Spontaneous
  Country: US (occurrence: US)
  Receive Date: 20120224
  Receipt Date: 20131226
  Transmission Date: 20140711
  Serious: Yes (Hospitalization)
  Sender: FDA-Public Use
  Company Number: US-BAYER-2012-016715

PATIENT
  Age: 22 Year
  Sex: Female
  Weight: 51.7 kg

DRUGS (6)
  1. YAZ [Suspect]
     Indication: CONTRACEPTION
     Dosage: UNK
     Dates: start: 201105, end: 201106
  2. ASPIRIN [Concomitant]
  3. CARVEDILOL [Concomitant]
  4. COREG [Concomitant]
  5. RANITIDINE [Concomitant]
  6. METOPROLOL [Concomitant]
     Dosage: UNK
     Dates: start: 2011, end: 2013

REACTIONS (8)
  - Acute myocardial infarction [None]
  - Injury [None]
  - Pain [None]
  - Emotional distress [None]
  - Ventricular extrasystoles [None]
  - Supraventricular extrasystoles [None]
  - Anxiety [None]
  - Anhedonia [None]
